FAERS Safety Report 5151356-6 (Version None)
Quarter: 2006Q4

REPORT INFORMATION
  Report Type: 
  Country: None (occurrence: None)
  Receive Date: 20061114
  Receipt Date: 20061114
  Transmission Date: 20070319
  Serious: Yes (Hospitalization)
  Sender: FDA-Public Use
  Company Number: None

PATIENT
  Age: 41 Year
  Sex: Male
  Weight: 82 kg

DRUGS (4)
  1. MYFORTIC [Suspect]
     Indication: PROPHYLAXIS AGAINST TRANSPLANT REJECTION
     Dosage: 720 MG PO BID
     Route: 048
     Dates: start: 20060727
  2. TACROLIMUS [Concomitant]
  3. CORTICOSTEROIDS [Concomitant]
  4. THYMOGLOBULIN [Concomitant]

REACTIONS (4)
  - CARDIAC ENZYMES INCREASED [None]
  - CORONARY ARTERY BYPASS [None]
  - DYSPNOEA [None]
  - TACHYCARDIA [None]
